FAERS Safety Report 5580186-6 (Version None)
Quarter: 2007Q4

REPORT INFORMATION
  Report Type: 
  Country: None (occurrence: None)
  Receive Date: 20071227
  Receipt Date: 20071227
  Transmission Date: 20080405
  Serious: Yes (Life-Threatening)
  Sender: FDA-Public Use
  Company Number: None

PATIENT
  Age: 29 Year
  Sex: Female
  Weight: 90.7194 kg

DRUGS (5)
  1. AMOX-CLAV 500 MILLIGRAMS [Suspect]
     Indication: INFLUENZA
     Dosage: I TOOK 5 PILLS 2 DAYS PO
     Route: 048
     Dates: start: 20060601, end: 20060601
  2. AMOX-CLAV 500 MILLIGRAMS [Suspect]
     Indication: NASOPHARYNGITIS
     Dosage: I TOOK 5 PILLS 2 DAYS PO
     Route: 048
     Dates: start: 20060601, end: 20060601
  3. AMOX-CLAV 500 MILLIGRAMS [Suspect]
     Indication: SINUS DISORDER
     Dosage: I TOOK 5 PILLS 2 DAYS PO
     Route: 048
     Dates: start: 20060601, end: 20060601
  4. AMOX-CLAV 500 MILLIGRAMS [Suspect]
     Indication: TOOTH ABSCESS
     Dosage: I TOOK 5 PILLS 2 DAYS PO
     Route: 048
     Dates: start: 20060601, end: 20060601
  5. ALKA SELTZER COLD COLD PLUS STRENGTH [Suspect]
     Dosage: I DRANK A PAIR 1 DAY PO
     Route: 048
     Dates: start: 20060501, end: 20060601

REACTIONS (2)
  - HYPOAESTHESIA [None]
  - POOR PERIPHERAL CIRCULATION [None]
